FAERS Safety Report 24178121 (Version 2)
Quarter: 2024Q3

REPORT INFORMATION
  Report Type: Spontaneous
  Country: US (occurrence: US)
  Receive Date: 20240806
  Receipt Date: 20240820
  Transmission Date: 20241017
  Serious: Yes (Hospitalization, Other)
  Sender: AUROBINDO
  Company Number: US-MLMSERVICE-20240722-PI139705-00232-1

PATIENT
  Age: 44 Year
  Sex: Male

DRUGS (8)
  1. MYCOPHENOLIC ACID [Suspect]
     Active Substance: MYCOPHENOLIC ACID
     Indication: Immunosuppression
     Dosage: 1000 MILLIGRAM, TWO TIMES A DAY
     Route: 065
     Dates: start: 202008
  2. PREDNISONE [Suspect]
     Active Substance: PREDNISONE
     Indication: Immunosuppression
     Dosage: 5 MILLIGRAM, ONCE A DAY
     Route: 065
     Dates: start: 202008
  3. PREDNISONE [Suspect]
     Active Substance: PREDNISONE
     Dosage: 10 MILLIGRAM, ONCE A DAY
     Route: 065
     Dates: start: 202008
  4. THYMOCYTE IMMUNE GLOBULIN NOS [Suspect]
     Active Substance: THYMOCYTE IMMUNE GLOBULIN NOS
     Indication: Immunosuppression
     Dosage: UNK
     Route: 065
     Dates: start: 202008
  5. TACROLIMUS [Suspect]
     Active Substance: TACROLIMUS
     Indication: Immunosuppression
     Dosage: 9 MILLIGRAM, TWO TIMES A DAY (TARGET TROUGH LEVEL 6-8 NG/ML)
     Route: 048
     Dates: start: 202008
  6. TACROLIMUS [Suspect]
     Active Substance: TACROLIMUS
     Dosage: REDUCED
     Route: 065
  7. CEFTRIAXONE [Concomitant]
     Active Substance: CEFTRIAXONE\CEFTRIAXONE SODIUM
     Indication: Bacterial infection
     Dosage: UNK
     Route: 065
  8. METRONIDAZOLE [Concomitant]
     Active Substance: METRONIDAZOLE
     Indication: Bacterial infection
     Dosage: UNK
     Route: 065

REACTIONS (5)
  - Urinary retention [Recovered/Resolved]
  - Monkeypox [Recovering/Resolving]
  - Intestinal obstruction [Recovering/Resolving]
  - Proctitis [Recovering/Resolving]
  - Diarrhoea [Recovering/Resolving]
